FAERS Safety Report 12527722 (Version 3)
Quarter: 2017Q1

REPORT INFORMATION
  Report Type: Report from Study
  Country: IT (occurrence: IT)
  Receive Date: 20160705
  Receipt Date: 20170306
  Transmission Date: 20170428
  Serious: Yes (Hospitalization)
  Sender: FDA-Public Use
  Company Number: IT-PFIZER INC-2016321714

PATIENT
  Age: 58 Year
  Sex: Female

DRUGS (8)
  1. CARDICOR [Concomitant]
     Active Substance: BISOPROLOL
     Indication: HYPERTENSION
     Dosage: UNK
  2. SUTENT [Suspect]
     Active Substance: SUNITINIB MALATE
     Dosage: 25 MG, DAILY
     Route: 048
     Dates: start: 20160302
  3. MINIRIN [Concomitant]
     Active Substance: DESMOPRESSIN ACETATE
     Indication: DIABETES INSIPIDUS
     Dosage: UNK
  4. SUTENT [Suspect]
     Active Substance: SUNITINIB MALATE
     Indication: RENAL CANCER
     Dosage: 37.5 MG, DAILY
     Route: 048
     Dates: start: 20151203, end: 20160210
  5. ACIDO FOLICO DOC GENERICI [Concomitant]
     Dosage: UNK
  6. BENEXOL [Concomitant]
     Active Substance: CYANOCOBALAMIN\PYRIDOXINE\THIAMINE
     Dosage: UNK
  7. SUTENT [Suspect]
     Active Substance: SUNITINIB MALATE
     Dosage: UNK
  8. VIDAZA [Suspect]
     Active Substance: AZACITIDINE
     Indication: ACUTE MYELOID LEUKAEMIA
     Dosage: 138.8 MG, CYCLIC
     Route: 058
     Dates: start: 20160217, end: 20160518

REACTIONS (6)
  - Acute myeloid leukaemia [Not Recovered/Not Resolved]
  - Pyrexia [Recovered/Resolved]
  - Dry skin [Recovered/Resolved]
  - Nausea [Recovered/Resolved]
  - Disease progression [Not Recovered/Not Resolved]
  - Asthenia [Recovering/Resolving]

NARRATIVE: CASE EVENT DATE: 20160210
